FAERS Safety Report 8839409 (Version 1)
Quarter: 2012Q4

REPORT INFORMATION
  Report Type: 
  Country: AU (occurrence: AU)
  Receive Date: 20121015
  Receipt Date: 20121015
  Transmission Date: 20130627
  Serious: Yes (Other)
  Sender: FDA-Public Use
  Company Number: PHHY2012AU090444

PATIENT
  Age: 80 Year
  Sex: Male

DRUGS (5)
  1. ACLASTA [Suspect]
     Dosage: 5 mg,
     Route: 042
     Dates: start: 20110919
  2. METOPROLOL [Concomitant]
     Indication: ANGINA PECTORIS
  3. CLOPIDOGREL [Concomitant]
     Indication: ANGINA PECTORIS
  4. ISOSORBIDE MONONITRATE [Concomitant]
     Indication: ANGINA PECTORIS
  5. GLYCERYL TRINITRATE [Concomitant]
     Indication: ANGINA PECTORIS

REACTIONS (3)
  - Angina pectoris [Recovered/Resolved]
  - Heart rate decreased [Recovered/Resolved]
  - Blood pressure systolic increased [Recovered/Resolved]
